FAERS Safety Report 25007220 (Version 1)
Quarter: 2025Q1

REPORT INFORMATION
  Report Type: Spontaneous
  Country: CA (occurrence: CA)
  Receive Date: 20250225
  Receipt Date: 20250225
  Transmission Date: 20250409
  Serious: Yes (Hospitalization, Other)
  Sender: CSL BEHRING
  Company Number: CA-BEH-2025196683

PATIENT
  Age: 41 Year
  Sex: Female
  Weight: 102 kg

DRUGS (3)
  1. HUMAN IMMUNOGLOBULIN G [Suspect]
     Active Substance: HUMAN IMMUNOGLOBULIN G
     Indication: Immune thrombocytopenia
     Route: 042
  2. HUMAN IMMUNOGLOBULIN G [Suspect]
     Active Substance: HUMAN IMMUNOGLOBULIN G
     Route: 042
  3. HUMAN IMMUNOGLOBULIN G [Suspect]
     Active Substance: HUMAN IMMUNOGLOBULIN G
     Route: 042

REACTIONS (6)
  - Spherocytic anaemia [Recovering/Resolving]
  - Anti A antibody positive [Recovering/Resolving]
  - Anti B antibody positive [Recovering/Resolving]
  - Coombs direct test positive [Recovering/Resolving]
  - Delayed haemolytic transfusion reaction [Recovering/Resolving]
  - Haptoglobin decreased [Recovering/Resolving]
